FAERS Safety Report 25176212 (Version 1)
Quarter: 2025Q2

REPORT INFORMATION
  Report Type: Spontaneous
  Country: US (occurrence: US)
  Receive Date: 20250409
  Receipt Date: 20250409
  Transmission Date: 20250717
  Serious: Yes (Other)
  Sender: TAKEDA
  Company Number: US-TAKEDA-2025TUS032729

PATIENT
  Age: 61 Year
  Sex: Female
  Weight: 48 kg

DRUGS (3)
  1. PENTASA [Suspect]
     Active Substance: MESALAMINE
     Indication: Colitis ulcerative
  2. ADVAIR HFA [Concomitant]
     Active Substance: FLUTICASONE PROPIONATE\SALMETEROL XINAFOATE
     Indication: Asthma
  3. MESALAMINE [Concomitant]
     Active Substance: MESALAMINE

REACTIONS (5)
  - Chronic kidney disease [Unknown]
  - Colitis ulcerative [Unknown]
  - Weight decreased [Unknown]
  - Alopecia [Unknown]
  - Inappropriate schedule of product administration [Unknown]

NARRATIVE: CASE EVENT DATE: 20241001
